FAERS Safety Report 5127519-2 (Version None)
Quarter: 2006Q4

REPORT INFORMATION
  Report Type: 
  Country: None (occurrence: None)
  Receive Date: 20061010
  Receipt Date: 20060927
  Transmission Date: 20070319
  Serious: Yes (Death, Hospitalization, Other)
  Sender: FDA-Public Use
  Company Number: 2006118084

PATIENT
  Age: 76 Year
  Sex: Male

DRUGS (3)
  1. SUTENT [Suspect]
     Indication: GASTROINTESTINAL STROMAL TUMOUR
     Dosage: 37.5 MG (1 IN 1 D) ORAL
     Route: 048
     Dates: start: 20060512, end: 20060902
  2. MORPHINE SULFATE [Suspect]
     Indication: PAIN
     Dosage: 60 MG (2 IN 1 D) ORAL
     Route: 048
     Dates: start: 20060901, end: 20060922
  3. MORPHINE SULFATE [Suspect]
     Indication: PAIN
     Dosage: 10 MG (FREQUENCY DAILY) ORAL
     Route: 048
     Dates: start: 20060901, end: 20060922

REACTIONS (21)
  - ACTIVATED PARTIAL THROMBOPLASTIN TIME PROLONGED [None]
  - BLOOD CALCIUM DECREASED [None]
  - BLOOD CHLORIDE INCREASED [None]
  - BLOOD IRON DECREASED [None]
  - BLOOD URIC ACID INCREASED [None]
  - DRUG TOXICITY [None]
  - HAEMATOCRIT DECREASED [None]
  - HAEMOGLOBIN DECREASED [None]
  - HEPATIC FAILURE [None]
  - HEPATIC LESION [None]
  - INTERNATIONAL NORMALISED RATIO INCREASED [None]
  - LYMPHOCYTE PERCENTAGE DECREASED [None]
  - MALIGNANT NEOPLASM PROGRESSION [None]
  - METASTASES TO LIVER [None]
  - MONOCYTE PERCENTAGE DECREASED [None]
  - NEUTROPHIL PERCENTAGE INCREASED [None]
  - OVERDOSE [None]
  - PROTEIN TOTAL DECREASED [None]
  - RED BLOOD CELL COUNT DECREASED [None]
  - RED BLOOD CELL SEDIMENTATION RATE INCREASED [None]
  - WHITE BLOOD CELL COUNT INCREASED [None]
